FAERS Safety Report 18447727 (Version 4)
Quarter: 2021Q4

REPORT INFORMATION
  Report Type: Spontaneous
  Country: CO (occurrence: CO)
  Receive Date: 20201030
  Receipt Date: 20211016
  Transmission Date: 20220303
  Serious: Yes (Hospitalization, Other)
  Sender: FDA-Public Use
  Company Number: CO-MERCK HEALTHCARE KGAA-9193816

PATIENT
  Age: 54 Year
  Sex: Female
  Weight: 75 kg

DRUGS (11)
  1. METFORMIN HYDROCHLORIDE [Suspect]
     Active Substance: METFORMIN HYDROCHLORIDE
     Indication: Glucose tolerance impaired
     Route: 048
  2. SANDOSTATIN [Suspect]
     Active Substance: OCTREOTIDE ACETATE
     Indication: Acromegaly
     Route: 030
     Dates: start: 200508
  3. SANDOSTATIN [Suspect]
     Active Substance: OCTREOTIDE ACETATE
     Route: 030
     Dates: start: 20070708, end: 201605
  4. SANDOSTATIN [Suspect]
     Active Substance: OCTREOTIDE ACETATE
     Dosage: EVERY 40 DAYS
     Route: 030
  5. SANDOSTATIN [Suspect]
     Active Substance: OCTREOTIDE ACETATE
     Dosage: SANDOSTATIN LAR READYFILL SYRINGE (OCTREOTIDE WITH POLY(DL-LACTIDE-CO-GLYCOLIDE)) UNKNOWN
  6. SANDOSTATIN [Suspect]
     Active Substance: OCTREOTIDE ACETATE
     Dosage: SANDOSTATIN LAR VIAL ADAPTOR (OCTREOTIDE WITH POLY(DL-LACTIDE-CO-GLYCOLIDE)) UNKNOWN
  7. SANDOSTATIN [Suspect]
     Active Substance: OCTREOTIDE ACETATE
     Dosage: SANDOSTATIN LAR MONOJECT SAFETY NEEDLE (OCTREOTIDE WITH POLY(DL-LACTIDE-CO-GLYCOLIDE)) UNKNOWN
  8. LOSARTAN [Suspect]
     Active Substance: LOSARTAN
     Indication: Hypertension
     Route: 048
  9. LEVOTHYROXINE [Concomitant]
     Active Substance: LEVOTHYROXINE
  10. CALCIUM\VITAMIN D [Concomitant]
     Active Substance: CALCIUM\VITAMIN D
     Indication: Product used for unknown indication
  11. LOSARTAN [Concomitant]
     Active Substance: LOSARTAN
     Indication: Product used for unknown indication

REACTIONS (22)
  - Cholecystitis infective [Unknown]
  - Haemobilia [Unknown]
  - Cholelithiasis [Unknown]
  - Nephrolithiasis [Unknown]
  - Spinal cord injury [Unknown]
  - Pancreatitis [Unknown]
  - Limb mass [Unknown]
  - Osteochondritis [Unknown]
  - Thyroid mass [Unknown]
  - Cortisol decreased [Unknown]
  - Depression [Unknown]
  - Dyspnoea [Unknown]
  - Dyspepsia [Unknown]
  - Insulin-like growth factor increased [Unknown]
  - Blood growth hormone increased [Unknown]
  - Skin discolouration [Unknown]
  - Diarrhoea [Unknown]
  - Abdominal pain upper [Unknown]
  - Abdominal pain [Unknown]
  - Abdominal discomfort [Unknown]
  - Gastrointestinal disorder [Unknown]
  - Off label use [Unknown]

NARRATIVE: CASE EVENT DATE: 20140101
